FAERS Safety Report 8448724-3 (Version None)
Quarter: 2012Q2

REPORT INFORMATION
  Report Type: 
  Country: None (occurrence: None)
  Receive Date: 20120619
  Receipt Date: 20120612
  Transmission Date: 20120825
  Serious: Yes (Other)
  Sender: FDA-Public Use
  Company Number: US-ROCHE-432379

PATIENT
  Sex: Female
  Weight: 56.7 kg

DRUGS (3)
  1. OVCON-35 [Concomitant]
     Indication: CONTRACEPTION
     Route: 048
  2. ACCUTANE [Suspect]
     Indication: ACNE
     Route: 048
     Dates: start: 19980501, end: 19980806
  3. ACCUTANE [Suspect]
     Route: 048
     Dates: start: 19980806, end: 19981006

REACTIONS (5)
  - FEMALE GENITAL TRACT FISTULA [None]
  - CROHN'S DISEASE [None]
  - ANAEMIA [None]
  - HAEMORRHOIDS [None]
  - INFLAMMATORY BOWEL DISEASE [None]
